FAERS Safety Report 9255313 (Version 1)
Quarter: 2013Q1

REPORT INFORMATION
  Report Type: Spontaneous
  Country: US (occurrence: None)
  Receive Date: 20121203
  Receipt Date: 20121203
  Transmission Date: 20140127
  Serious: Yes (Other)
  Sender: FDA-Public Use
  Company Number: 2012SP034975

PATIENT
  Age: 47 Year
  Sex: Female
  Weight: 95.2 kg

DRUGS (1)
  1. NUVARING [Suspect]
     Indication: CONTRACEPTION

REACTIONS (5)
  - Cerebrovascular accident [None]
  - Back disorder [None]
  - Otorhinolaryngological surgery [None]
  - Seasonal allergy [None]
  - Cystocele [None]
